FAERS Safety Report 7047460-8 (Version None)
Quarter: 2010Q4

REPORT INFORMATION
  Report Type: 
  Country: None (occurrence: None)
  Receive Date: 20101015
  Receipt Date: 20101011
  Transmission Date: 20110411
  Serious: Yes (Death, Other)
  Sender: FDA-Public Use
  Company Number: US-B.I. PHARMACEUTICALS,INC./RIDGEFIELD-2010-BP-11396BP

PATIENT
  Age: 79 Year
  Sex: Male

DRUGS (2)
  1. FLOMAX [Suspect]
     Indication: PROSTATOMEGALY
     Dosage: 0.4 MG
     Route: 048
     Dates: start: 20070101, end: 20100901
  2. AVODART [Concomitant]
     Indication: PROSTATOMEGALY

REACTIONS (2)
  - ANEURYSM [None]
  - ANEURYSM RUPTURED [None]
